FAERS Safety Report 7446167-2 (Version None)
Quarter: 2011Q2

REPORT INFORMATION
  Report Type: 
  Country: None (occurrence: None)
  Receive Date: 20110429
  Receipt Date: 20110425
  Transmission Date: 20111010
  Serious: Yes (Hospitalization)
  Sender: FDA-Public Use
  Company Number: B0715969A

PATIENT
  Age: 73 Year
  Sex: Female
  Weight: 98.4 kg

DRUGS (13)
  1. LOTREL [Concomitant]
     Indication: HYPERTENSION
     Dosage: 40MG PER DAY
     Route: 048
     Dates: start: 20080101
  2. VENTOLIN [Concomitant]
     Indication: ASTHMA
     Dosage: 90MCG PER DAY
     Route: 055
     Dates: start: 19960101
  3. XANAX [Concomitant]
     Indication: ANXIETY
     Dosage: 3TAB AS REQUIRED
     Route: 048
     Dates: start: 20110101
  4. OTC ANTIHISTAMINE [Concomitant]
     Indication: SINUS CONGESTION
     Dosage: 2TAB AS REQUIRED
     Route: 048
     Dates: start: 20110403
  5. PERCOCET [Concomitant]
     Indication: BREAST PAIN
     Route: 048
     Dates: start: 20110101
  6. ZOFRAN [Concomitant]
     Indication: NAUSEA
     Dosage: 8MG AS REQUIRED
     Route: 048
     Dates: start: 20110408
  7. TYKERB [Suspect]
     Dosage: 1250MG PER DAY
     Route: 048
     Dates: start: 20110407
  8. IRON SULFATETHIAMIN COMPOUND TAB [Concomitant]
     Dosage: 325MG TWICE PER DAY
     Route: 048
     Dates: start: 20090101
  9. PHENERGAN HCL [Concomitant]
     Dosage: 25MG AS REQUIRED
     Route: 048
     Dates: start: 20110407
  10. TAXOL [Suspect]
     Dosage: 250MCG CYCLIC
     Route: 042
     Dates: start: 20110407
  11. UNKNOWN DRUG [Concomitant]
     Dosage: 1000MG TWICE PER DAY
     Route: 048
     Dates: start: 20080101
  12. ADVAIR DISKUS 100/50 [Concomitant]
     Indication: ASTHMA
     Dosage: 250MG TWICE PER DAY
     Route: 055
     Dates: start: 19960101
  13. ATIVAN [Concomitant]
     Indication: NAUSEA
     Dosage: 1MG AS REQUIRED
     Route: 048
     Dates: start: 20110101

REACTIONS (4)
  - URINARY TRACT INFECTION [None]
  - VOMITING [None]
  - RENAL FAILURE ACUTE [None]
  - NAUSEA [None]
